FAERS Safety Report 5733450-1 (Version None)
Quarter: 2008Q2

REPORT INFORMATION
  Report Type: 
  Country: None (occurrence: None)
  Receive Date: 20080509
  Receipt Date: 20080507
  Transmission Date: 20081010
  Serious: Yes (Life-Threatening, Hospitalization)
  Sender: FDA-Public Use
  Company Number: US-GILEAD-2008-0016046

PATIENT
  Sex: Female

DRUGS (14)
  1. LETAIRIS [Suspect]
     Route: 048
     Dates: start: 20080317
  2. METOPROLOL TARTRATE [Concomitant]
  3. ZOCOR [Concomitant]
  4. IMDUR [Concomitant]
  5. POTASSIUM CHLORIDE [Concomitant]
  6. ASPIRIN [Concomitant]
  7. ZOLOFT [Concomitant]
  8. REGLAN [Concomitant]
  9. LASIX [Concomitant]
  10. FLOLAN [Concomitant]
  11. MAGNESIUM [Concomitant]
  12. CALCIUM [Concomitant]
  13. VITAMIN B-12 [Concomitant]
  14. IRON [Concomitant]

REACTIONS (2)
  - CARDIAC FAILURE CONGESTIVE [None]
  - OEDEMA [None]
